FAERS Safety Report 11630222 (Version 1)
Quarter: 2015Q4

REPORT INFORMATION
  Report Type: Spontaneous
  Country: US (occurrence: US)
  Receive Date: 20151014
  Receipt Date: 20151014
  Transmission Date: 20160304
  Serious: No
  Sender: FDA-Public Use
  Company Number: US-INDIVIOR-RB-080451-2015

PATIENT
  Age: 35 Year
  Sex: Male

DRUGS (5)
  1. SUBOXONE [Suspect]
     Active Substance: BUPRENORPHINE HYDROCHLORIDE\NALOXONE HYDROCHLORIDE
     Indication: DRUG DEPENDENCE
     Dosage: VARIOUS DOSES FOR 30 DAYS
     Route: 060
     Dates: start: 201312, end: 201401
  2. SUBOXONE [Suspect]
     Active Substance: BUPRENORPHINE HYDROCHLORIDE\NALOXONE HYDROCHLORIDE
     Dosage: 6 MG, QD FOR 6-7 MONTHS
     Route: 060
     Dates: start: 201401, end: 2014
  3. SUBOXONE [Suspect]
     Active Substance: BUPRENORPHINE HYDROCHLORIDE\NALOXONE HYDROCHLORIDE
     Dosage: 2 MG, QD
     Route: 060
     Dates: start: 201504
  4. SUBOXONE [Suspect]
     Active Substance: BUPRENORPHINE HYDROCHLORIDE\NALOXONE HYDROCHLORIDE
     Dosage: TAPERING DOSES FOR AROUND 7-9 MONTHS
     Route: 060
     Dates: start: 2014, end: 201504
  5. SUBOXONE [Suspect]
     Active Substance: BUPRENORPHINE HYDROCHLORIDE\NALOXONE HYDROCHLORIDE
     Dosage: 1 MG, QD
     Route: 060
     Dates: start: 201504, end: 201504

REACTIONS (11)
  - Hyperhidrosis [Recovering/Resolving]
  - Disturbance in attention [Recovering/Resolving]
  - Sluggishness [Recovering/Resolving]
  - Somnolence [Recovering/Resolving]
  - Confusional state [Recovering/Resolving]
  - Amnesia [Recovering/Resolving]
  - Apathy [Recovering/Resolving]
  - Product preparation error [Not Recovered/Not Resolved]
  - Depression [Recovering/Resolving]
  - Drug dependence [Not Recovered/Not Resolved]
  - Hypoaesthesia [Recovering/Resolving]

NARRATIVE: CASE EVENT DATE: 201312
